FAERS Safety Report 8449269-7 (Version None)
Quarter: 2012Q2

REPORT INFORMATION
  Report Type: 
  Country: None (occurrence: None)
  Receive Date: 20120619
  Receipt Date: 20120609
  Transmission Date: 20120825
  Serious: Yes (Other)
  Sender: FDA-Public Use
  Company Number: IE-BAXTER-2012BAX008396

PATIENT
  Sex: Male

DRUGS (2)
  1. PENICILLIN G POTASSIUM [Suspect]
     Route: 042
     Dates: start: 20120608, end: 20120608
  2. SODIUM CHLORIDE INTRAVENOUS INFUSION BP 0.9% W/V [Suspect]
     Route: 042
     Dates: start: 20120608, end: 20120608

REACTIONS (1)
  - RASH [None]
